FAERS Safety Report 8791470 (Version 2)
Quarter: 2012Q4

REPORT INFORMATION
  Report Type: Spontaneous
  Country: US (occurrence: None)
  Receive Date: 20120912
  Receipt Date: 20120925
  Transmission Date: 20130627
  Serious: Yes (Other)
  Sender: FDA-Public Use
  Company Number: USA/USA/12/0025786

PATIENT
  Age: 75 Year
  Sex: Male

DRUGS (4)
  1. CLOPIDOGREL BISULFATE [Suspect]
     Indication: DRUG USE FOR UNKNOWN INDICATION
     Route: 048
     Dates: start: 20120813
  2. ASPIRIN (ACETYLSALICYLIC ACID) [Concomitant]
  3. ANGIOMAX (BIVALIRUDIN) [Concomitant]
  4. BOLUS HEPARIN (HEPARIN) [Concomitant]

REACTIONS (1)
  - Thrombosis in device [None]
